FAERS Safety Report 7056683-3 (Version None)
Quarter: 2010Q4

REPORT INFORMATION
  Report Type: 
  Country: None (occurrence: None)
  Receive Date: 20101021
  Receipt Date: 20101011
  Transmission Date: 20110411
  Serious: Yes (Other)
  Sender: FDA-Public Use
  Company Number: US-AMGEN LTD.-QUU433324

PATIENT

DRUGS (12)
  1. NPLATE [Suspect]
     Indication: IDIOPATHIC THROMBOCYTOPENIC PURPURA
     Dosage: 10 A?G/KG, QWK
     Route: 058
     Dates: start: 20081006, end: 20090612
  2. PROTONIX [Concomitant]
     Dosage: 40 UNK, QD
     Route: 048
  3. ATENOLOL [Concomitant]
     Dosage: 50 UNK, BID
     Route: 048
  4. LEVOTHYROXINE [Concomitant]
     Dosage: .88 UNK, QD
     Route: 048
  5. LASIX [Concomitant]
     Dosage: 20 UNK, QD
     Route: 048
  6. ALDACTONE [Concomitant]
     Dosage: 25 MG, QD
  7. CATAPRES                           /00171101/ [Concomitant]
  8. HYZAAR                             /01284801/ [Concomitant]
  9. SYMBICORT [Concomitant]
  10. CLONIDINE [Concomitant]
     Dosage: 0.1 MG, QD
  11. OXYGEN [Concomitant]
  12. OSCAL D                            /00944201/ [Concomitant]
     Dosage: 500 UNK, BID

REACTIONS (4)
  - ASCITES [None]
  - DRUG INEFFECTIVE [None]
  - OEDEMA PERIPHERAL [None]
  - SPLENOMEGALY [None]
